FAERS Safety Report 7325683-8 (Version None)
Quarter: 2011Q1

REPORT INFORMATION
  Report Type: 
  Country: None (occurrence: None)
  Receive Date: 20110215
  Receipt Date: 20110208
  Transmission Date: 20110831
  Serious: Yes (Hospitalization)
  Sender: FDA-Public Use
  Company Number: 2011027559

PATIENT
  Age: 81 Year
  Sex: Female
  Weight: 89.5 kg

DRUGS (2)
  1. VIVAGLOBIN [Suspect]
  2. VIVAGLOBIN [Suspect]
     Indication: IMMUNODEFICIENCY COMMON VARIABLE
     Dosage: SEE IMAGE
     Route: 058
     Dates: start: 20080701

REACTIONS (1)
  - STAPHYLOCOCCAL INFECTION [None]
